FAERS Safety Report 4491070-3 (Version None)
Quarter: 2004Q4

REPORT INFORMATION
  Report Type: 
  Country: None (occurrence: None)
  Receive Date: 20041027
  Receipt Date: 20041014
  Transmission Date: 20050328
  Serious: Yes (Death)
  Sender: FDA-Public Use
  Company Number: 2004-BP-09947RO

PATIENT
  Age: 37 Year
  Sex: Female

DRUGS (2)
  1. METHADONE HCL [Suspect]
     Dosage: PO
     Route: 048
  2. LIBRIUM [Suspect]

REACTIONS (1)
  - SELF-MEDICATION [None]
